FAERS Safety Report 13190663 (Version 2)
Quarter: 2017Q1

REPORT INFORMATION
  Report Type: Spontaneous
  Country: US (occurrence: US)
  Receive Date: 20170206
  Receipt Date: 20170312
  Transmission Date: 20170428
  Serious: Yes (Hospitalization)
  Sender: FDA-Public Use
  Company Number: US-CELGENEUS-USA-2017020383

PATIENT
  Sex: Female

DRUGS (2)
  1. REVLIMID [Suspect]
     Active Substance: LENALIDOMIDE
     Indication: MYELODYSPLASTIC SYNDROME
  2. REVLIMID [Suspect]
     Active Substance: LENALIDOMIDE
     Indication: GRANULOMATOSIS WITH POLYANGIITIS
     Dosage: 10 MILLIGRAM
     Route: 048
     Dates: start: 20170110

REACTIONS (1)
  - Dyspnoea [Not Recovered/Not Resolved]
